FAERS Safety Report 10353887 (Version 1)
Quarter: 2014Q3

REPORT INFORMATION
  Report Type: Spontaneous
  Country: FR (occurrence: FR)
  Receive Date: 20140731
  Receipt Date: 20140731
  Transmission Date: 20150326
  Serious: Yes (Hospitalization)
  Sender: FDA-Public Use
  Company Number: FR-JNJFOC-20140714420

PATIENT
  Age: 47 Year
  Sex: Male

DRUGS (19)
  1. KARDEGIC [Concomitant]
     Active Substance: ASPIRIN LYSINE
     Dosage: 160+75MG
     Route: 065
  2. LOXEN [Concomitant]
     Active Substance: NICARDIPINE HYDROCHLORIDE
     Route: 065
  3. TIORFAN [Concomitant]
     Active Substance: RACECADOTRIL
     Dosage: 100 (UNITS NOT SPECIFIED)
     Route: 065
  4. TOPALGIC [Concomitant]
     Active Substance: TRAMADOL
     Route: 065
  5. VENLAFAXINE [Concomitant]
     Active Substance: VENLAFAXINE HYDROCHLORIDE
     Dosage: 75(UNITS NOT SPECIFIED)
     Route: 065
  6. CRESTOR [Concomitant]
     Active Substance: ROSUVASTATIN CALCIUM
     Dosage: 5 (UNITS NOT SPECIFIED)
     Route: 065
  7. LOPERAMIDE [Concomitant]
     Active Substance: LOPERAMIDE
     Route: 065
  8. THERALENE [Concomitant]
     Active Substance: TRIMEPRAZINE
     Route: 065
  9. TRUVADA [Suspect]
     Active Substance: EMTRICITABINE\TENOFOVIR DISOPROXIL FUMARATE
     Indication: HIV INFECTION
     Route: 065
  10. TRANXENE T-TAB [Concomitant]
     Active Substance: CLORAZEPATE DIPOTASSIUM
     Dosage: 5 (UNITS NOT SPECIFIED)
     Route: 065
  11. SALBUTAMOL [Concomitant]
     Active Substance: ALBUTEROL
     Route: 065
  12. PREZISTA [Suspect]
     Active Substance: DARUNAVIR ETHANOLATE
     Indication: HIV INFECTION
     Route: 048
  13. LASILIX [Concomitant]
     Active Substance: FUROSEMIDE
     Dosage: 40 (UNITS NOT SPECIFIED)
     Route: 065
  14. NICORETTESKIN [Concomitant]
     Route: 065
  15. NORVIR [Suspect]
     Active Substance: RITONAVIR
     Indication: HIV INFECTION
     Route: 048
  16. NICOPASS [Concomitant]
     Active Substance: NICOTINE
  17. PERINDOPRIL [Suspect]
     Active Substance: PERINDOPRIL
     Indication: HYPERTENSION
     Route: 048
     Dates: end: 20140622
  18. OROZAMUDOL [Concomitant]
     Route: 065
  19. WELLVONE [Concomitant]
     Active Substance: ATOVAQUONE
     Dosage: 750(UNITS NOT SPECIFIED)
     Route: 065

REACTIONS (2)
  - Cough [Recovered/Resolved with Sequelae]
  - Pyrexia [Recovered/Resolved]

NARRATIVE: CASE EVENT DATE: 201404
